FAERS Safety Report 5411593-X (Version None)
Quarter: 2007Q3

REPORT INFORMATION
  Report Type: 
  Country: None (occurrence: None)
  Receive Date: 20070810
  Receipt Date: 20070727
  Transmission Date: 20080115
  Serious: Yes (Hospitalization, Other)
  Sender: FDA-Public Use
  Company Number: JP-PFIZER INC-2007060162

PATIENT
  Sex: Male
  Weight: 68 kg

DRUGS (9)
  1. LIPITOR [Suspect]
     Indication: HYPERCHOLESTEROLAEMIA
     Route: 048
     Dates: start: 20070612, end: 20070706
  2. TICLOPIDINE HCL [Suspect]
     Indication: ANTIPLATELET THERAPY
     Route: 048
     Dates: start: 20070612, end: 20070627
  3. TOCOPHERYL NICOTINATE [Concomitant]
     Route: 048
  4. MICARDIS [Concomitant]
     Route: 048
  5. ADALAT [Concomitant]
     Route: 048
  6. DOXAZOSIN MESYLATE [Concomitant]
     Route: 048
  7. ASPIRIN [Concomitant]
     Route: 048
  8. SELBEX [Concomitant]
     Route: 048
  9. ZANTAC 150 [Concomitant]
     Route: 048

REACTIONS (4)
  - ANOREXIA [None]
  - BACTERIAL CULTURE POSITIVE [None]
  - MALAISE [None]
  - PYREXIA [None]
